FAERS Safety Report 19069465 (Version 1)
Quarter: 2021Q1

REPORT INFORMATION
  Report Type: Report from Study
  Country: US (occurrence: US)
  Receive Date: 20210329
  Receipt Date: 20210329
  Transmission Date: 20210420
  Serious: Yes (Hospitalization, Other)
  Sender: FDA-Public Use
  Company Number: US-JNJFOC-20210246511

PATIENT
  Age: 52 Year
  Sex: Female
  Weight: 90.8 kg

DRUGS (4)
  1. TADALAFIL. [Concomitant]
     Active Substance: TADALAFIL
  2. REMODULIN [Concomitant]
     Active Substance: TREPROSTINIL
  3. MACITENTAN [Suspect]
     Active Substance: MACITENTAN
     Indication: PULMONARY HYPERTENSION
     Route: 048
  4. ELIQUIS [Concomitant]
     Active Substance: APIXABAN

REACTIONS (6)
  - Dyspnoea [Unknown]
  - Chest pain [Unknown]
  - Syncope [Unknown]
  - Presyncope [Unknown]
  - Palpitations [Unknown]
  - Tunnel vision [Unknown]

NARRATIVE: CASE EVENT DATE: 20210202
